FAERS Safety Report 21756334 (Version 2)
Quarter: 2023Q1

REPORT INFORMATION
  Report Type: Spontaneous
  Country: US (occurrence: US)
  Receive Date: 20221220
  Receipt Date: 20230203
  Transmission Date: 20230418
  Serious: Yes (Hospitalization)
  Sender: FDA-Public Use
  Company Number: US-MALLINCKRODT-T202206514

PATIENT
  Sex: Female

DRUGS (1)
  1. H.P. ACTHAR [Suspect]
     Active Substance: CORTICOTROPIN
     Indication: Punctate keratitis
     Dosage: 1 MILLILITER (80 UNITS) ON MONDAY AND THURSDAY MORNING EACH WEEK
     Route: 058
     Dates: start: 202212

REACTIONS (1)
  - Illness [Not Recovered/Not Resolved]
